FAERS Safety Report 8951065 (Version 1)
Quarter: 2012Q4

REPORT INFORMATION
  Report Type: 
  Country: US (occurrence: US)
  Receive Date: 20121207
  Receipt Date: 20121207
  Transmission Date: 20130627
  Serious: Yes (Other)
  Sender: FDA-Public Use
  Company Number: US-PFIZER INC-2012306842

PATIENT
  Sex: Female

DRUGS (2)
  1. ZOLOFT [Suspect]
     Dosage: UNK
  2. SERTRALINE HCL [Suspect]
     Dosage: UNK

REACTIONS (5)
  - Depression [Unknown]
  - Suicidal ideation [Unknown]
  - Disturbance in attention [Unknown]
  - Impaired work ability [Unknown]
  - Drug ineffective [Unknown]
